FAERS Safety Report 17327667 (Version 2)
Quarter: 2020Q1

REPORT INFORMATION
  Report Type: Report from Study
  Country: PL (occurrence: PL)
  Receive Date: 20200127
  Receipt Date: 20200205
  Transmission Date: 20200409
  Serious: Yes (Hospitalization)
  Sender: FDA-Public Use
  Company Number: PL-EXELIXIS-XL18420026835

PATIENT
  Age: 69 Year
  Sex: Male

DRUGS (10)
  1. SITAGLIPTINUM [Concomitant]
  2. PROPAFENON [Concomitant]
     Active Substance: PROPAFENONE
  3. ACETYLSALICYLIC ACID [Concomitant]
     Active Substance: ASPIRIN
  4. XL184 [Suspect]
     Active Substance: CABOZANTINIB
     Indication: HEPATOCELLULAR CARCINOMA
     Dosage: 40 MG, QD
     Route: 048
     Dates: start: 20191025
  5. VINPOCETINUM [Concomitant]
  6. METFORMAX [Concomitant]
     Active Substance: METFORMIN HYDROCHLORIDE
  7. ROSULINE [Concomitant]
  8. AMARYL [Concomitant]
     Active Substance: GLIMEPIRIDE
  9. BISOPROLOLUM [Concomitant]
     Active Substance: BISOPROLOL FUMARATE
  10. ATEZOLIZUMAB. [Suspect]
     Active Substance: ATEZOLIZUMAB
     Indication: HEPATOCELLULAR CARCINOMA
     Dosage: 1200 MG, Q3WEEKS
     Route: 042
     Dates: start: 20191025

REACTIONS (1)
  - Sepsis [Recovered/Resolved]

NARRATIVE: CASE EVENT DATE: 20200113
